FAERS Safety Report 4353415-4 (Version None)
Quarter: 2004Q2

REPORT INFORMATION
  Report Type: 
  Country: None (occurrence: None)
  Receive Date: 20040503
  Receipt Date: 20040503
  Transmission Date: 20050107
  Serious: Yes (Other)
  Sender: FDA-Public Use
  Company Number: None

PATIENT
  Age: 45 Year
  Sex: Female

DRUGS (1)
  1. POVIDONE IODINE [Suspect]

REACTIONS (4)
  - APPLICATION SITE REACTION [None]
  - BURNS FIRST DEGREE [None]
  - ERYTHEMA [None]
  - INJURY [None]
